FAERS Safety Report 11641064 (Version 3)
Quarter: 2015Q4

REPORT INFORMATION
  Report Type: Spontaneous
  Country: CH (occurrence: CH)
  Receive Date: 20151019
  Receipt Date: 20151105
  Transmission Date: 20160304
  Serious: Yes (Death, Other)
  Sender: FDA-Public Use
  Company Number: CH-PFIZER INC-2015344671

PATIENT
  Age: 23 Month
  Sex: Male
  Weight: 13 kg

DRUGS (28)
  1. ZOVIRAX [Suspect]
     Active Substance: ACYCLOVIR
     Dosage: 160 MG, 3X/DAY
     Route: 048
     Dates: start: 20150615, end: 20150711
  2. NOPIL [Suspect]
     Active Substance: SULFAMETHOXAZOLE\TRIMETHOPRIM
     Dosage: 180 MG, 2X/DAY ON 3 CONSECUTIVE DAYS
     Route: 048
     Dates: start: 20150615, end: 20150618
  3. ROCURONIUM FRESENIUS [Concomitant]
     Dosage: DIFFERENT DOSAGES 0.6-1.2 MG/KG/H, STOPPED OCCASIONALLY
     Route: 042
     Dates: start: 20150615, end: 20150630
  4. PROPRANOLOL [Concomitant]
     Active Substance: PROPRANOLOL\PROPRANOLOL HYDROCHLORIDE
     Dosage: 2.5 MG, 3X/DAY
     Route: 048
     Dates: start: 20150617, end: 20150716
  5. ACTILYSE [Concomitant]
     Active Substance: ALTEPLASE
     Dosage: 1.2 MG, SINGLE
     Route: 042
     Dates: start: 20150625, end: 20150625
  6. AMPHO MORONAL [Concomitant]
     Dosage: UNK
     Route: 048
     Dates: start: 20150713, end: 20150716
  7. RAPAMUNE [Suspect]
     Active Substance: SIROLIMUS
     Dosage: 0.6 MG, 1X/DAY VIA TUBE
     Dates: start: 20150513, end: 20150704
  8. VELCADE [Suspect]
     Active Substance: BORTEZOMIB
     Dosage: 0.65 MG, 1X/DAY
     Route: 042
     Dates: start: 20150417, end: 20150417
  9. SPORANOX [Suspect]
     Active Substance: ITRACONAZOLE
     Dosage: 60 MG, 1X/DAY
     Route: 048
     Dates: start: 20150709, end: 20150713
  10. MABTHERA [Suspect]
     Active Substance: RITUXIMAB
     Dosage: UNK
     Route: 042
     Dates: start: 20150715, end: 20150715
  11. VINCRISTIN [Concomitant]
     Active Substance: VINCRISTINE
     Dates: start: 20150417, end: 20150604
  12. VELCADE [Suspect]
     Active Substance: BORTEZOMIB
     Dosage: 0.65 MG, 1X/DAY
     Route: 042
     Dates: start: 20150604, end: 20150604
  13. SPORANOX [Suspect]
     Active Substance: ITRACONAZOLE
     Dosage: 60 MG, 1X/DAY
     Route: 048
     Dates: start: 20150222, end: 20150707
  14. MABTHERA [Suspect]
     Active Substance: RITUXIMAB
     Dosage: 190 MG, 1X/DAY
     Route: 041
     Dates: start: 20150428, end: 20150603
  15. MORPHIN HCL SINTETICA [Concomitant]
     Dosage: 40-50 MCG/KG/H
     Dates: start: 20150615, end: 20150716
  16. NIFEDIPIN RATIOPHARM [Suspect]
     Active Substance: NIFEDIPINE
     Dosage: 15 MG, 2X/DAY
     Route: 048
     Dates: start: 20150617, end: 20150707
  17. MABTHERA [Suspect]
     Active Substance: RITUXIMAB
     Dosage: 50 MG/H FOR 3 HOURS
     Route: 042
     Dates: start: 20150625, end: 20150625
  18. VANCOCIN [Concomitant]
     Active Substance: VANCOMYCIN HYDROCHLORIDE
     Dosage: 220 MG, 3X/DAY
     Route: 042
     Dates: start: 20150615, end: 20150623
  19. ZOVIRAX [Suspect]
     Active Substance: ACYCLOVIR
     Dosage: UNK
     Route: 048
     Dates: start: 20150712, end: 20150716
  20. DORMICUM /00634101/ [Concomitant]
     Active Substance: MIDAZOLAM\MIDAZOLAM HYDROCHLORIDE
     Dosage: PERMANTENT DRIP 0.2-0.3 MG/KG/H
     Route: 042
     Dates: start: 20150615, end: 20150716
  21. TRACRIUM [Concomitant]
     Active Substance: ATRACURIUM BESYLATE
     Dosage: 13 MG, 3X/DAY
     Route: 042
     Dates: start: 20150626, end: 20150626
  22. VELCADE [Suspect]
     Active Substance: BORTEZOMIB
     Dosage: 0.65 MG, 1X/DAY
     Route: 042
     Dates: start: 20150626, end: 20150626
  23. OMEZOL MEPHA [Suspect]
     Active Substance: OMEPRAZOLE
     Dosage: 10 MG, 1X/DAY
     Route: 042
     Dates: start: 20150615, end: 20150716
  24. CELLCEPT [Suspect]
     Active Substance: MYCOPHENOLATE MOFETIL\MYCOPHENOLATE MOFETIL HYDROCHLORIDE
     Dosage: 220 MG, 3X/DAY
     Route: 048
     Dates: start: 20150513, end: 20150715
  25. RENITEN SUBMITE [Suspect]
     Active Substance: ENALAPRIL MALEATE
     Route: 048
     Dates: start: 20150702, end: 20150707
  26. NERVIFENE [Concomitant]
     Active Substance: CHLORAL HYDRATE
     Dosage: 260 MG, 4X/DAY
     Route: 054
     Dates: start: 20150615, end: 20150716
  27. SPIRICORT [Concomitant]
     Active Substance: PREDNISOLONE
  28. AMPHO MORONAL [Concomitant]
     Dosage: UNK
     Route: 048
     Dates: start: 20150707, end: 20150709

REACTIONS (9)
  - Renal failure [Not Recovered/Not Resolved]
  - Oxygen saturation decreased [Not Recovered/Not Resolved]
  - Hepatic failure [None]
  - Oedema peripheral [Not Recovered/Not Resolved]
  - Drug administered to patient of inappropriate age [Unknown]
  - Multi-organ failure [Fatal]
  - Transaminases increased [Not Recovered/Not Resolved]
  - Liver disorder [Not Recovered/Not Resolved]
  - Hyperbilirubinaemia [Not Recovered/Not Resolved]

NARRATIVE: CASE EVENT DATE: 20150513
